FAERS Safety Report 18372798 (Version 2)
Quarter: 2020Q4

REPORT INFORMATION
  Report Type: Spontaneous
  Country: US (occurrence: US)
  Receive Date: 20201012
  Receipt Date: 20201029
  Transmission Date: 20210114
  Serious: No
  Sender: FDA-Public Use
  Company Number: US-PFIZER INC-2020391532

PATIENT
  Age: 58 Year
  Sex: Female
  Weight: 70.75 kg

DRUGS (4)
  1. VITAMIN D3 [Concomitant]
     Active Substance: CHOLECALCIFEROL
     Dosage: UNK
  2. IBRANCE [Suspect]
     Active Substance: PALBOCICLIB
     Dosage: 125 MG, CYCLIC (DAYS 1 THROUGH 21 EVERY 28 DAYS)
     Route: 048
     Dates: start: 20200923, end: 2020
  3. LETROZOLE. [Concomitant]
     Active Substance: LETROZOLE
     Dosage: UNK
  4. LEVOTHYROXINE SODIUM. [Concomitant]
     Active Substance: LEVOTHYROXINE SODIUM
     Dosage: UNK

REACTIONS (4)
  - White blood cell count decreased [Unknown]
  - Blood count abnormal [Unknown]
  - Fatigue [Unknown]
  - Breath odour [Unknown]

NARRATIVE: CASE EVENT DATE: 2020
